FAERS Safety Report 11798995 (Version 3)
Quarter: 2016Q1

REPORT INFORMATION
  Report Type: Report from Study
  Country: US (occurrence: US)
  Receive Date: 20151203
  Receipt Date: 20160129
  Transmission Date: 20160525
  Serious: No
  Sender: FDA-Public Use
  Company Number: US-AMGEN-USASL2015111671

PATIENT
  Age: 76 Year
  Sex: Female

DRUGS (2)
  1. CRESTOR [Concomitant]
     Active Substance: ROSUVASTATIN CALCIUM
     Indication: DYSLIPIDAEMIA
  2. REPATHA [Suspect]
     Active Substance: EVOLOCUMAB
     Indication: TYPE V HYPERLIPIDAEMIA
     Dosage: 140 MG, Q2WK
     Route: 065
     Dates: start: 20151022

REACTIONS (14)
  - Malaise [Recovered/Resolved]
  - Salivary hypersecretion [Unknown]
  - Hypoaesthesia oral [Unknown]
  - Feeling abnormal [Unknown]
  - Dizziness [Unknown]
  - Viral infection [Recovering/Resolving]
  - Injection site pruritus [Unknown]
  - Pain [Unknown]
  - Anxiety [Unknown]
  - Rhinorrhoea [Unknown]
  - Painful respiration [Unknown]
  - Pyrexia [Unknown]
  - Influenza like illness [Unknown]
  - Nervousness [Unknown]

NARRATIVE: CASE EVENT DATE: 2015
